FAERS Safety Report 24061360 (Version 6)
Quarter: 2025Q1

REPORT INFORMATION
  Report Type: Spontaneous
  Country: US (occurrence: US)
  Receive Date: 20240708
  Receipt Date: 20250103
  Transmission Date: 20250409
  Serious: No
  Sender: PFIZER
  Company Number: US-PFIZER INC-202400206898

PATIENT
  Age: 67 Year
  Sex: Female

DRUGS (1)
  1. PREMARIN [Suspect]
     Active Substance: ESTROGENS, CONJUGATED

REACTIONS (5)
  - Drug hypersensitivity [Unknown]
  - Burning sensation [Unknown]
  - Pruritus [Unknown]
  - Discomfort [Unknown]
  - Off label use [Unknown]
